FAERS Safety Report 17656762 (Version 1)
Quarter: 2020Q2

REPORT INFORMATION
  Report Type: Spontaneous
  Country: US (occurrence: US)
  Receive Date: 20200410
  Receipt Date: 20200410
  Transmission Date: 20200713
  Serious: No
  Sender: FDA-Public Use
  Company Number: US-PERRIGO-17US032761

PATIENT
  Age: 24 Year
  Sex: Male
  Weight: 77.1 kg

DRUGS (1)
  1. PSEUDOEPHEDRINE HYDROCHLORIDE. [Suspect]
     Active Substance: PSEUDOEPHEDRINE HYDROCHLORIDE
     Indication: VIRAL INFECTION
     Dosage: 120 MG, TWICE
     Route: 048
     Dates: start: 20171110, end: 20171110

REACTIONS (2)
  - Eye swelling [Unknown]
  - Eyelid margin crusting [Unknown]

NARRATIVE: CASE EVENT DATE: 20171110
